FAERS Safety Report 17108071 (Version 1)
Quarter: 2019Q4

REPORT INFORMATION
  Report Type: Spontaneous
  Country: US (occurrence: US)
  Receive Date: 20191204
  Receipt Date: 20191204
  Transmission Date: 20200122
  Serious: No
  Sender: FDA-Public Use
  Company Number: US-UCBSA-2017046461

PATIENT
  Age: 54 Year
  Sex: Female

DRUGS (1)
  1. CIMZIA [Suspect]
     Active Substance: CERTOLIZUMAB PEGOL
     Indication: RHEUMATOID ARTHRITIS
     Dosage: 400 MG, MONTHLY (QM)
     Route: 058
     Dates: start: 20170310, end: 20171020

REACTIONS (1)
  - Influenza like illness [Unknown]

NARRATIVE: CASE EVENT DATE: 20170721
